FAERS Safety Report 8381037-7 (Version None)
Quarter: 2012Q2

REPORT INFORMATION
  Report Type: 
  Country: None (occurrence: None)
  Receive Date: 20120522
  Receipt Date: 20111110
  Transmission Date: 20120825
  Serious: No
  Sender: FDA-Public Use
  Company Number: 2011-11022

PATIENT
  Age: 77 Year
  Sex: Male

DRUGS (7)
  1. THERACYS [Suspect]
     Indication: BLADDER CANCER
     Dosage: I.VES.
     Route: 042
     Dates: start: 20111024, end: 20111024
  2. LIPITOR [Concomitant]
  3. LISINOPRIL [Concomitant]
  4. MULTAQ [Concomitant]
  5. CARDIZEM [Concomitant]
  6. MULTI-VITAMIN [Concomitant]
  7. COUMADIN [Concomitant]

REACTIONS (3)
  - PRURITUS [None]
  - RASH ERYTHEMATOUS [None]
  - RASH MACULO-PAPULAR [None]
